FAERS Safety Report 6631411-1 (Version None)
Quarter: 2010Q1

REPORT INFORMATION
  Report Type: 
  Country: None (occurrence: None)
  Receive Date: 20100311
  Receipt Date: 20100311
  Transmission Date: 20100710
  Serious: Yes (Death, Hospitalization)
  Sender: FDA-Public Use
  Company Number: None

PATIENT
  Age: 55 Year
  Sex: Male
  Weight: 58.6501 kg

DRUGS (2)
  1. OXALIPLATIN [Suspect]
     Indication: PANCREATIC CARCINOMA METASTATIC
     Dosage: 48MG/M2 Q 2 WEEKS IV
     Route: 042
     Dates: start: 20090421, end: 20100215
  2. SORAFENIB 200 MG TAB BAYER PHARMACEUTICALS [Suspect]
     Indication: PANCREATIC CARCINOMA METASTATIC
     Dosage: 200 MG QD PO
     Route: 048
     Dates: start: 20090421, end: 20100302

REACTIONS (8)
  - DEVICE OCCLUSION [None]
  - GASTROINTESTINAL OBSTRUCTION [None]
  - IATROGENIC INJURY [None]
  - INTESTINAL PERFORATION [None]
  - NAUSEA [None]
  - PROCEDURAL COMPLICATION [None]
  - SHUNT MALFUNCTION [None]
  - VOMITING [None]
